FAERS Safety Report 22644744 (Version 1)
Quarter: 2023Q2

REPORT INFORMATION
  Report Type: Spontaneous
  Country: DE (occurrence: None)
  Receive Date: 20230627
  Receipt Date: 20230627
  Transmission Date: 20230721
  Serious: Yes (Other)
  Sender: FDA-Public Use
  Company Number: 2023A146621

PATIENT
  Sex: Female

DRUGS (8)
  1. TAGRISSO [Suspect]
     Active Substance: OSIMERTINIB
     Indication: Non-small cell lung cancer
     Route: 048
     Dates: start: 202206
  2. SPIROTON RATHIOPHARM [Concomitant]
     Dosage: 50MG/20MG
  3. BISOPROLOL FUMARATE [Concomitant]
     Active Substance: BISOPROLOL FUMARATE
     Dosage: 150MG 2-3 HOURS
  4. LETROZOLE [Concomitant]
     Active Substance: LETROZOLE
     Dosage: 2.5MG IN THE EVENING
  5. L-TIROXIN [Concomitant]
     Dosage: 300
  6. ZINC [Concomitant]
     Active Substance: ZINC
  7. CALCIUM/VITAMIN D NOS [Concomitant]
  8. IBUPROFEN [Concomitant]
     Active Substance: IBUPROFEN

REACTIONS (1)
  - Tumour marker increased [Not Recovered/Not Resolved]
